FAERS Safety Report 25806786 (Version 1)
Quarter: 2025Q3

REPORT INFORMATION
  Report Type: Spontaneous
  Country: GB (occurrence: GB)
  Receive Date: 20250916
  Receipt Date: 20250916
  Transmission Date: 20251021
  Serious: Yes (Other)
  Sender: CELLTRION
  Company Number: None

PATIENT

DRUGS (3)
  1. ADALIMUMAB [Suspect]
     Active Substance: ADALIMUMAB
     Indication: Axial spondyloarthritis
     Dosage: 40MG EVERY 2 WEEKS
     Dates: start: 20250801, end: 20250904
  2. ADALIMUMAB [Suspect]
     Active Substance: ADALIMUMAB
  3. VERAPAMIL [Concomitant]
     Active Substance: VERAPAMIL HYDROCHLORIDE
     Indication: Tachycardia
     Dates: start: 202503

REACTIONS (10)
  - Arthralgia [Recovering/Resolving]
  - Menstruation delayed [Not Recovered/Not Resolved]
  - Myalgia [Recovering/Resolving]
  - Fatigue [Recovering/Resolving]
  - Chills [Recovered/Resolved]
  - Erythema [Recovered/Resolved]
  - Asthenia [Recovering/Resolving]
  - Constipation [Recovering/Resolving]
  - Rash erythematous [Unknown]
  - Paraesthesia [Recovering/Resolving]
